FAERS Safety Report 11169956 (Version 1)
Quarter: 2015Q2

REPORT INFORMATION
  Report Type: Spontaneous
  Country: CN (occurrence: None)
  Receive Date: 20150604
  Receipt Date: 20150604
  Transmission Date: 20150821
  Serious: Yes (Other)
  Sender: FDA-Public Use
  Company Number: CN2015074860

PATIENT
  Sex: Male

DRUGS (9)
  1. ADEFOVIR DIPIVOXIL. [Suspect]
     Active Substance: ADEFOVIR DIPIVOXIL
     Indication: CHRONIC HEPATITIS B
  2. PREDNISOLONE (PREDNISOLONE) UNKNOWN [Suspect]
     Active Substance: PREDNISOLONE
     Indication: IMMUNOSUPPRESSION
  3. LAMIVUDINE (LAMIVUDINE) UNKNOWN [Suspect]
     Active Substance: LAMIVUDINE
     Indication: CHRONIC HEPATITIS B
  4. TELBIVUDINE [Suspect]
     Active Substance: TELBIVUDINE
     Indication: CHRONIC HEPATITIS B
  5. TACROLIMUS (TACROLIMUS) UNKNOWN, UNKUNK [Suspect]
     Active Substance: TACROLIMUS
     Indication: IMMUNOSUPPRESSION
  6. VIREAD [Suspect]
     Active Substance: TENOFOVIR DISOPROXIL FUMARATE
     Indication: CHRONIC HEPATITIS B
  7. TACROLIMUS (TACROLIMUS) UNKNOWN, UNKUNK [Suspect]
     Active Substance: TACROLIMUS
     Indication: TRANSPLANT REJECTION
  8. ENTECAVIR (ENTECAVIR) UNKNOWN [Suspect]
     Active Substance: ENTECAVIR
     Indication: CHRONIC HEPATITIS B
  9. PREDNISOLONE (PREDNISOLONE) UNKNOWN [Suspect]
     Active Substance: PREDNISOLONE
     Indication: TRANSPLANT REJECTION

REACTIONS (6)
  - Renal failure [None]
  - Hyperglycaemia [None]
  - Type 2 diabetes mellitus [None]
  - Drug resistance [None]
  - Asymptomatic viral hepatitis [None]
  - Hepatitis [None]
